FAERS Safety Report 8378320-8 (Version None)
Quarter: 2012Q2

REPORT INFORMATION
  Report Type: 
  Country: None (occurrence: None)
  Receive Date: 20120522
  Receipt Date: 20120514
  Transmission Date: 20120825
  Serious: Yes (Hospitalization)
  Sender: FDA-Public Use
  Company Number: PHHO2012IT007518

PATIENT
  Sex: Male
  Weight: 60 kg

DRUGS (3)
  1. PLACEBO [Suspect]
     Indication: PRIMARY PROGRESSIVE MULTIPLE SCLEROSIS
     Dosage: 1 DF, QD
     Route: 048
     Dates: start: 20101130
  2. OXYCODONE HCL W/NALOXONE HCL [Concomitant]
     Indication: PAIN
     Dosage: 2 DF, QD
  3. GABAPENTIN [Suspect]
     Indication: PAIN
     Dosage: 400 MG, BID
     Route: 048

REACTIONS (1)
  - CHOLECYSTITIS ACUTE [None]
